FAERS Safety Report 19201247 (Version 1)
Quarter: 2021Q2

REPORT INFORMATION
  Report Type: Report from Study
  Country: ES (occurrence: ES)
  Receive Date: 20210430
  Receipt Date: 20210430
  Transmission Date: 20210717
  Serious: Yes (Hospitalization, Other)
  Sender: FDA-Public Use
  Company Number: ES-SHIRE-ALL1-2012-06503

PATIENT
  Age: 17 Year
  Sex: Male
  Weight: 42.3 kg

DRUGS (7)
  1. HYDROCORTISONE. [Concomitant]
     Active Substance: HYDROCORTISONE
     Indication: STEROID THERAPY
     Dosage: 5 MG, 3X/DAY:TID
     Route: 048
     Dates: start: 20061222, end: 20070207
  2. IDURSULFASE [Suspect]
     Active Substance: IDURSULFASE
     Indication: MUCOPOLYSACCHARIDOSIS II
     Dosage: 0.5 MG/KG, 1X/WEEK
     Route: 041
     Dates: start: 20060814
  3. IPRATROPIUM [Concomitant]
     Active Substance: IPRATROPIUM
     Indication: RESPIRATORY DISORDER
     Dosage: 250 ?G, 4X/DAY:QID
     Route: 055
     Dates: start: 20060102
  4. HYDROCORTISONE. [Concomitant]
     Active Substance: HYDROCORTISONE
     Dosage: 10 MG, 3X/DAY:TID
     Route: 048
     Dates: start: 20061207, end: 20061222
  5. HYDROCORTISONE. [Concomitant]
     Active Substance: HYDROCORTISONE
     Dosage: 20 MG, 3X/DAY:TID
     Route: 048
     Dates: start: 20061010, end: 20061207
  6. HYDROCORTISONE. [Concomitant]
     Active Substance: HYDROCORTISONE
     Indication: PREMEDICATION
     Dosage: 5 MG, 2X/DAY:BID
     Route: 048
     Dates: start: 20070207
  7. SALBUTAMOL [Concomitant]
     Active Substance: ALBUTEROL
     Indication: RESPIRATORY DISORDER
     Dosage: 5 MG, 4X/DAY:QID
     Route: 055
     Dates: start: 20060102

REACTIONS (4)
  - Nerve compression [Recovered/Resolved]
  - Spinal cord injury lumbar [Recovered/Resolved]
  - Pain in extremity [Recovered/Resolved]
  - Respiratory distress [Recovered/Resolved]

NARRATIVE: CASE EVENT DATE: 20070302
